FAERS Safety Report 23844144 (Version 1)
Quarter: 2024Q2

REPORT INFORMATION
  Report Type: Report from Study
  Country: ZA (occurrence: None)
  Receive Date: 20240510
  Receipt Date: 20240510
  Transmission Date: 20240716
  Serious: Yes (Death)
  Sender: FDA-Public Use
  Company Number: 2024A110026

PATIENT
  Age: 70 Year
  Sex: Male

DRUGS (3)
  1. DAPAGLIFLOZIN [Suspect]
     Active Substance: DAPAGLIFLOZIN
     Dosage: UNKNOWN
     Route: 048
  2. ALFUWIN XL [Concomitant]
  3. BETACOR [Concomitant]

REACTIONS (1)
  - Death [Fatal]

NARRATIVE: CASE EVENT DATE: 20240317
